FAERS Safety Report 5050803-8 (Version None)
Quarter: 2006Q3

REPORT INFORMATION
  Report Type: 
  Country: None (occurrence: None)
  Receive Date: 20060713
  Receipt Date: 20060707
  Transmission Date: 20061208
  Serious: Yes (Death)
  Sender: FDA-Public Use
  Company Number: US-BRISTOL-MYERS SQUIBB COMPANY-13435912

PATIENT
  Age: 61 Year
  Sex: Male

DRUGS (1)
  1. COUMADIN [Suspect]
     Indication: CORONARY ARTERY DISEASE

REACTIONS (1)
  - MYOCARDIAL INFARCTION [None]
